FAERS Safety Report 22020023 (Version 1)
Quarter: 2023Q1

REPORT INFORMATION
  Report Type: Spontaneous
  Country: JP (occurrence: JP)
  Receive Date: 20230222
  Receipt Date: 20230222
  Transmission Date: 20230417
  Serious: Yes (Death, Life-Threatening, Hospitalization, Other)
  Sender: FDA-Public Use
  Company Number: JP-002147023-NVSJ2023JP003519

PATIENT
  Age: 69 Year
  Sex: Male

DRUGS (3)
  1. EVEROLIMUS [Suspect]
     Active Substance: EVEROLIMUS
     Indication: Renal transplant
     Dosage: 1.5 MG
     Route: 065
     Dates: end: 20210827
  2. TACROLIMUS [Concomitant]
     Active Substance: TACROLIMUS
     Indication: Product used for unknown indication
     Dosage: 2 MG
     Route: 065
     Dates: end: 20210908
  3. MEDROL [Concomitant]
     Active Substance: METHYLPREDNISOLONE
     Indication: Product used for unknown indication
     Dosage: 4 MG
     Route: 065
     Dates: end: 20210827

REACTIONS (9)
  - Death [Fatal]
  - Breakthrough COVID-19 [Unknown]
  - Pyrexia [Unknown]
  - Oropharyngeal pain [Unknown]
  - Physical deconditioning [Unknown]
  - Stenotrophomonas bacteraemia [Unknown]
  - Bronchopulmonary aspergillosis [Unknown]
  - Bacteraemia [Unknown]
  - Fungaemia [Unknown]

NARRATIVE: CASE EVENT DATE: 20210801
